FAERS Safety Report 4591039-4 (Version None)
Quarter: 2005Q1

REPORT INFORMATION
  Report Type: 
  Country: None (occurrence: None)
  Receive Date: 20050222
  Receipt Date: 20050222
  Transmission Date: 20050727
  Serious: Yes (Hospitalization, Other)
  Sender: FDA-Public Use
  Company Number: None

PATIENT
  Age: 52 Year
  Sex: Male
  Weight: 97.5234 kg

DRUGS (1)
  1. METHADONE HCL [Suspect]
     Indication: BACK PAIN
     Dosage: 10MG  3 TIMES DAILY ORAL
     Route: 048
     Dates: start: 20021001, end: 20050220

REACTIONS (5)
  - BEDRIDDEN [None]
  - DELIRIUM TREMENS [None]
  - DRUG DEPENDENCE [None]
  - DRUG WITHDRAWAL SYNDROME [None]
  - SUICIDAL IDEATION [None]
